FAERS Safety Report 6401934-9 (Version None)
Quarter: 2009Q4

REPORT INFORMATION
  Report Type: 
  Country: None (occurrence: None)
  Receive Date: 20091015
  Receipt Date: 20091006
  Transmission Date: 20100525
  Serious: Yes (Hospitalization)
  Sender: FDA-Public Use
  Company Number: A0810033A

PATIENT
  Sex: Female
  Weight: 81 kg

DRUGS (7)
  1. ELTROMBOPAG [Suspect]
     Indication: THROMBOCYTOPENIA
     Dosage: 25MG PER DAY
     Route: 048
     Dates: start: 20090422
  2. PEGASYS [Suspect]
     Dosage: 180MCG WEEKLY
     Route: 058
     Dates: start: 20090422
  3. COPEGUS [Suspect]
     Route: 048
     Dates: start: 20090422
  4. ELTROMBOPAG [Suspect]
     Dosage: 25MG PER DAY
     Route: 048
     Dates: start: 20090409, end: 20090421
  5. DARBEPOETIN ALFA [Concomitant]
     Route: 058
     Dates: start: 20090609
  6. FIBER POWDER [Concomitant]
     Indication: CONSTIPATION
     Dosage: 13.8G AS REQUIRED
     Dates: start: 20090908
  7. OMEPRAZOLE [Concomitant]
     Dosage: 40MG PER DAY
     Dates: start: 20090917

REACTIONS (6)
  - COUGH [None]
  - DYSPNOEA [None]
  - FEBRILE NEUTROPENIA [None]
  - HEADACHE [None]
  - MYALGIA [None]
  - URINARY INCONTINENCE [None]
